FAERS Safety Report 4775274-8 (Version None)
Quarter: 2005Q3

REPORT INFORMATION
  Report Type: 
  Country: None (occurrence: None)
  Receive Date: 20050921
  Receipt Date: 20050921
  Transmission Date: 20060218
  Serious: Yes (Other)
  Sender: FDA-Public Use
  Company Number: None

PATIENT
  Age: 47 Year
  Sex: Female
  Weight: 78.9259 kg

DRUGS (1)
  1. TIAZAC [Suspect]
     Indication: HYPERTENSION
     Dosage: 300 MG QD PO
     Route: 048
     Dates: start: 20050726, end: 20050816

REACTIONS (3)
  - HEADACHE [None]
  - NAUSEA [None]
  - VOMITING [None]
